FAERS Safety Report 14168623 (Version 1)
Quarter: 2017Q4

REPORT INFORMATION
  Report Type: Spontaneous
  Country: FR (occurrence: FR)
  Receive Date: 20171108
  Receipt Date: 20171108
  Transmission Date: 20180321
  Serious: Yes (Other)
  Sender: FDA-Public Use
  Company Number: FR-MERCK KGAA-2033511

PATIENT
  Age: 20 Year
  Sex: Female

DRUGS (1)
  1. NOVOTHYROX [Suspect]
     Active Substance: LEVOTHYROXINE SODIUM
     Indication: BLOOD THYROID STIMULATING HORMONE INCREASED
     Route: 048
     Dates: start: 20170201, end: 20170825

REACTIONS (7)
  - Muscle spasms [Unknown]
  - Visual impairment [Unknown]
  - Weight increased [Unknown]
  - Asthenia [Unknown]
  - Insomnia [Unknown]
  - Alopecia [Unknown]
  - Depression [Unknown]

NARRATIVE: CASE EVENT DATE: 201706
